FAERS Safety Report 7750541-4 (Version None)
Quarter: 2011Q3

REPORT INFORMATION
  Report Type: 
  Country: None (occurrence: None)
  Receive Date: 20110914
  Receipt Date: 20110906
  Transmission Date: 20111222
  Serious: Yes (Hospitalization)
  Sender: FDA-Public Use
  Company Number: CA-JNJFOC-20110903149

PATIENT
  Sex: Male
  Weight: 110 kg

DRUGS (21)
  1. REMICADE [Suspect]
     Indication: ILL-DEFINED DISORDER
     Dosage: 35 INFUSIONS
     Route: 042
  2. CHOLESTYRAMINE [Concomitant]
  3. OMEGA VITAMIN [Concomitant]
  4. ZANTAC [Concomitant]
  5. VITAMIN D [Concomitant]
  6. LOMOTIL [Concomitant]
  7. VITAMIN B COMPLEX CAP [Concomitant]
  8. CALCIUM CARBONATE [Concomitant]
  9. MELATONIN [Concomitant]
  10. MULTIPLE VITAMIN [Concomitant]
  11. FLAXSEED OIL [Concomitant]
  12. MAGNESIUM [Concomitant]
  13. ZOPICLONE [Concomitant]
  14. VITAMIN B-12 [Concomitant]
  15. VITAMIN B6 [Concomitant]
  16. VITAMIN B1 TAB [Concomitant]
  17. NASONEX [Concomitant]
  18. FLOVENT [Concomitant]
  19. VENTOLIN HFA [Concomitant]
  20. ASCORBIC ACID [Concomitant]
  21. REACTINE [Concomitant]

REACTIONS (2)
  - NEPHROLITHIASIS [None]
  - SINUSITIS [None]
